FAERS Safety Report 8330260-6 (Version None)
Quarter: 2012Q2

REPORT INFORMATION
  Report Type: 
  Country: None (occurrence: None)
  Receive Date: 20120502
  Receipt Date: 20120430
  Transmission Date: 20120825
  Serious: Yes (Other)
  Sender: FDA-Public Use
  Company Number: US-PFIZER INC-2012106390

PATIENT
  Sex: Male
  Weight: 100 kg

DRUGS (5)
  1. OLANZAPINE [Concomitant]
     Dosage: 5 MG, DAILY
  2. NICOTROL [Suspect]
     Indication: SMOKING CESSATION THERAPY
     Dosage: UNK
  3. LISINOPRIL [Concomitant]
     Indication: HYPERTENSION
     Dosage: 5 MG, DAILY
  4. ALBUTEROL SULFATE [Concomitant]
     Indication: CHRONIC OBSTRUCTIVE PULMONARY DISEASE
     Dosage: UNK
  5. CHANTIX [Suspect]
     Indication: SMOKING CESSATION THERAPY
     Dosage: UNK

REACTIONS (6)
  - SELF-INJURIOUS IDEATION [None]
  - DRUG INEFFECTIVE [None]
  - SUICIDAL IDEATION [None]
  - AGGRESSION [None]
  - HOMICIDAL IDEATION [None]
  - MALAISE [None]
